FAERS Safety Report 7889680-6 (Version None)
Quarter: 2011Q4

REPORT INFORMATION
  Report Type: 
  Country: None (occurrence: None)
  Receive Date: 20111103
  Receipt Date: 20111025
  Transmission Date: 20120403
  Serious: No
  Sender: FDA-Public Use
  Company Number: US-ASTRAZENECA-2011SE26230

PATIENT
  Age: 70 Year
  Sex: Female

DRUGS (7)
  1. NEXIUM [Suspect]
     Dosage: ONE PER DAY
     Route: 048
  2. NEXIUM [Suspect]
     Route: 048
  3. ACCOLATE [Suspect]
     Route: 048
  4. CRESTOR [Suspect]
     Route: 048
  5. TOPROL-XL [Suspect]
     Route: 048
  6. RHINOCORT [Suspect]
     Dosage: 32 MCG
     Route: 045
  7. NEXIUM [Suspect]
     Dosage: TWO PER DAY
     Route: 048

REACTIONS (8)
  - GASTROOESOPHAGEAL REFLUX DISEASE [None]
  - DYSGEUSIA [None]
  - MUSCULOSKELETAL DISCOMFORT [None]
  - CHEILITIS [None]
  - OROPHARYNGEAL BLISTERING [None]
  - RHINORRHOEA [None]
  - DRUG INEFFECTIVE [None]
  - STOMATITIS [None]
